FAERS Safety Report 20574074 (Version 2)
Quarter: 2022Q1

REPORT INFORMATION
  Report Type: Report from Study
  Country: GB (occurrence: GB)
  Receive Date: 20220309
  Receipt Date: 20220310
  Transmission Date: 20220423
  Serious: Yes (Hospitalization)
  Sender: FDA-Public Use
  Company Number: GB-002147023-NVSC2022GB029200

PATIENT
  Age: 5 Year
  Sex: Male
  Weight: 15.8 kg

DRUGS (14)
  1. TOPOTECAN HYDROCHLORIDE [Suspect]
     Active Substance: TOPOTECAN HYDROCHLORIDE
     Indication: Brain neoplasm malignant
     Dosage: UNK
     Route: 065
  2. CYCLOPHOSPHAMIDE [Suspect]
     Active Substance: CYCLOPHOSPHAMIDE
     Indication: Brain neoplasm malignant
     Dosage: 5 DAYS EVERY 21
     Route: 042
     Dates: start: 20220121
  3. VENETOCLAX [Suspect]
     Active Substance: VENETOCLAX
     Indication: Brain neoplasm malignant
     Dosage: 120 MG, 1X/DAY (120 MG, QD)
     Route: 033
     Dates: start: 20220119, end: 20220119
  4. VENETOCLAX [Suspect]
     Active Substance: VENETOCLAX
     Dosage: 250 MG, 1X/DAY (250 MG, QD)
     Route: 033
     Dates: start: 20220120
  5. CHOLECALCIFEROL [Concomitant]
     Active Substance: CHOLECALCIFEROL
     Indication: Mineral supplementation
     Dosage: 3000 UNIT I IN 1 DAY
     Route: 065
     Dates: start: 20220123
  6. COTRIMOXAZOLE [Concomitant]
     Active Substance: SULFAMETHOXAZOLE\TRIMETHOPRIM
     Indication: Infection prophylaxis
     Dosage: BID ON MONDAY AND TUESDAY 240 MG
     Route: 048
     Dates: start: 20220119
  7. CYCLIZINE HYDROCHLORIDE [Concomitant]
     Active Substance: CYCLIZINE HYDROCHLORIDE
     Indication: Nausea
     Dosage: 1.5 MG/KG (0.5 MG/KG 3 IN 1 DAY)
     Route: 042
     Dates: start: 20220123
  8. LOPERAMIDE [Concomitant]
     Active Substance: LOPERAMIDE
     Indication: Diarrhoea
     Dosage: 1 MG, AS NEEDED (1 MG, PRN)
     Route: 048
     Dates: start: 20220119
  9. ONDANSETRON [Concomitant]
     Active Substance: ONDANSETRON
     Indication: Prophylaxis of nausea and vomiting
     Dosage: 4 MG, 3X/DAY (3 TIMES PER DAY (4 MG, 1 AS REQUIRED))
     Route: 048
     Dates: start: 20220119
  10. ONDANSETRON [Concomitant]
     Active Substance: ONDANSETRON
     Dosage: 9 MG, 1X/DAY (9 MG, QD, 3MG , 3)
     Route: 042
     Dates: start: 20220123
  11. OXYCODONE [Concomitant]
     Active Substance: OXYCODONE
     Indication: Pain prophylaxis
     Dosage: 12 MG(3 MG, 4 IN 1 DAY)
     Route: 048
     Dates: start: 20220119
  12. PREGABALIN [Concomitant]
     Active Substance: PREGABALIN
     Indication: Anxiety
     Dosage: 40 MG, 2 IN 1 DAY
     Route: 048
     Dates: start: 20220119
  13. SELENIUM [Concomitant]
     Active Substance: SELENIUM
     Indication: Selenium deficiency
     Dosage: 30 UG, 1X/DAY ROUTE VIA PEG TUBE (30 MCG, 1 IN 1 DAY)
     Route: 065
     Dates: start: 20220119
  14. ZINC SULFATE [Concomitant]
     Active Substance: ZINC SULFATE
     Indication: Zinc deficiency
     Dosage: 22.5 MG, 1X/DAY (22.5 MG, QD, ROUTE VIA PEG TUBE)
     Route: 065
     Dates: start: 20220119

REACTIONS (4)
  - Haematuria [Not Recovered/Not Resolved]
  - Febrile neutropenia [Not Recovered/Not Resolved]
  - Pyrexia [Unknown]
  - Abdominal pain upper [Unknown]

NARRATIVE: CASE EVENT DATE: 20220122
